FAERS Safety Report 14588849 (Version 1)
Quarter: 2018Q1

REPORT INFORMATION
  Report Type: Spontaneous
  Country: US (occurrence: US)
  Receive Date: 20180301
  Receipt Date: 20180301
  Transmission Date: 20180509
  Serious: Yes (Other)
  Sender: FDA-Public Use
  Company Number: US-LUNDBECK-DKLU2044802

PATIENT
  Sex: Female

DRUGS (1)
  1. ONFI [Suspect]
     Active Substance: CLOBAZAM
     Indication: SEIZURE
     Route: 048

REACTIONS (4)
  - Pregnancy [Unknown]
  - Drug dose omission [Unknown]
  - Fatigue [Unknown]
  - Drug withdrawal convulsions [Unknown]
